FAERS Safety Report 7515218-9 (Version None)
Quarter: 2011Q2

REPORT INFORMATION
  Report Type: 
  Country: None (occurrence: None)
  Receive Date: 20110601
  Receipt Date: 20100608
  Transmission Date: 20111010
  Serious: No
  Sender: FDA-Public Use
  Company Number: US-PFIZER INC-2010072069

PATIENT
  Sex: Female
  Weight: 57 kg

DRUGS (8)
  1. PREDNISOLONE [Concomitant]
     Indication: MYALGIA
     Dosage: UNK
  2. HYDROCHLOROTHIAZIDE [Concomitant]
     Dosage: UNK
  3. IBANDRONATE SODIUM [Concomitant]
     Dosage: ONCE A MONTH
  4. CHANTIX [Suspect]
     Indication: SMOKING CESSATION THERAPY
     Dosage: 0.5 MG, 1X/DAY
     Route: 048
     Dates: start: 20100530
  5. KLONOPIN [Concomitant]
     Dosage: UNK
  6. DIPYRIDAMOLE [Concomitant]
     Dosage: UNK
  7. RELPAX [Concomitant]
     Dosage: UNK
  8. KLOR-CON [Concomitant]
     Dosage: UNK

REACTIONS (4)
  - SOMNOLENCE [None]
  - VOMITING [None]
  - WEIGHT DECREASED [None]
  - ABDOMINAL DISCOMFORT [None]
